FAERS Safety Report 10621492 (Version 1)
Quarter: 2014Q4

REPORT INFORMATION
  Report Type: Spontaneous
  Country: US (occurrence: None)
  Receive Date: 20141126
  Receipt Date: 20141126
  Transmission Date: 20150529
  Serious: Yes (Hospitalization)
  Sender: FDA-Public Use
  Company Number: None

PATIENT
  Age: 66 Year
  Sex: Female
  Weight: 39.9 kg

DRUGS (11)
  1. ATIVAN [Concomitant]
     Active Substance: LORAZEPAM
  2. TACROLIMUS. [Suspect]
     Active Substance: TACROLIMUS
  3. METHOTREXATE [Suspect]
     Active Substance: METHOTREXATE
  4. SENNA [Concomitant]
     Active Substance: SENNA LEAF\SENNOSIDES\SENNOSIDES A AND B
  5. FLUDARABINE PHOSPHATE. [Suspect]
     Active Substance: FLUDARABINE PHOSPHATE
  6. NEURONTIN [Concomitant]
     Active Substance: GABAPENTIN
  7. REMERON [Concomitant]
     Active Substance: MIRTAZAPINE
  8. G-CSF (FILGRASTIM, AMGEN) [Suspect]
     Active Substance: FILGRASTIM
  9. ACYCLOVIR. [Concomitant]
     Active Substance: ACYCLOVIR
  10. BUSULFAN [Suspect]
     Active Substance: BUSULFAN
  11. DULCOLAX [Concomitant]
     Active Substance: BISACODYL OR DOCUSATE SODIUM

REACTIONS (8)
  - Urosepsis [None]
  - Acute kidney injury [None]
  - Dehydration [None]
  - Dysphagia [None]
  - Hypotension [None]
  - Neuroleptic malignant syndrome [None]
  - Urinary tract infection enterococcal [None]
  - Escherichia test positive [None]

NARRATIVE: CASE EVENT DATE: 20100316
